FAERS Safety Report 5712870-5 (Version None)
Quarter: 2008Q2

REPORT INFORMATION
  Report Type: 
  Country: None (occurrence: None)
  Receive Date: 20080422
  Receipt Date: 20080418
  Transmission Date: 20081010
  Serious: Yes (Hospitalization)
  Sender: FDA-Public Use
  Company Number: B0517461A

PATIENT
  Age: 6 Year
  Sex: Male

DRUGS (3)
  1. ZINNAT [Suspect]
     Indication: PHARYNGITIS
     Dosage: 47MGK PER DAY
     Route: 048
     Dates: start: 20080214, end: 20080218
  2. PARACETAMOL [Suspect]
     Indication: PHARYNGITIS
     Dosage: 60MGK PER DAY
     Route: 048
     Dates: start: 20080214, end: 20080216
  3. PARACETAMOL [Suspect]
     Dosage: 120MGK PER DAY
     Route: 048
     Dates: start: 20080217, end: 20080218

REACTIONS (12)
  - BLOOD POTASSIUM ABNORMAL [None]
  - EPSTEIN-BARR VIRUS INFECTION [None]
  - HEPATIC FAILURE [None]
  - HEPATOMEGALY [None]
  - HEPATOTOXICITY [None]
  - LYMPHADENOPATHY [None]
  - PROTEINURIA [None]
  - RASH PAPULAR [None]
  - RASH PRURITIC [None]
  - RENAL TUBULAR DISORDER [None]
  - SKIN EXFOLIATION [None]
  - URINE SODIUM INCREASED [None]
